FAERS Safety Report 5798696-5 (Version None)
Quarter: 2008Q2

REPORT INFORMATION
  Report Type: 
  Country: None (occurrence: None)
  Receive Date: 20080630
  Receipt Date: 20080624
  Transmission Date: 20081010
  Serious: Yes (Death, Hospitalization)
  Sender: FDA-Public Use
  Company Number: THQ2008A01023

PATIENT
  Sex: Female

DRUGS (3)
  1. ZOTON FASTAB (LANSOPRAZOLE) (TABLETS) [Suspect]
     Dosage: 30 MG PER ORAL
     Route: 048
  2. INDAPAMIDE [Concomitant]
  3. ASPIRIN [Concomitant]

REACTIONS (2)
  - CONDITION AGGRAVATED [None]
  - JAUNDICE [None]
